FAERS Safety Report 8518230-6 (Version None)
Quarter: 2012Q3

REPORT INFORMATION
  Report Type: 
  Country: None (occurrence: None)
  Receive Date: 20120718
  Receipt Date: 20120103
  Transmission Date: 20120928
  Serious: Yes (Life-Threatening)
  Sender: FDA-Public Use
  Company Number: US-BRISTOL-MYERS SQUIBB COMPANY-16246084

PATIENT
  Age: 13 Year
  Sex: Male

DRUGS (1)
  1. COUMADIN [Suspect]
     Dosage: 5MG,5.5MG,INCREASED TO 10MG

REACTIONS (1)
  - INTERNATIONAL NORMALISED RATIO DECREASED [None]
